FAERS Safety Report 8242749-9 (Version None)
Quarter: 2012Q1

REPORT INFORMATION
  Report Type: 
  Country: None (occurrence: None)
  Receive Date: 20120329
  Receipt Date: 20120321
  Transmission Date: 20120608
  Serious: Yes (Other)
  Sender: FDA-Public Use
  Company Number: IT-BRISTOL-MYERS SQUIBB COMPANY-16428971

PATIENT
  Age: 40 Year
  Sex: Female

DRUGS (3)
  1. NORVIR [Suspect]
     Indication: ANTIRETROVIRAL THERAPY
     Route: 048
  2. REYATAZ [Suspect]
     Indication: ANTIRETROVIRAL THERAPY
     Dosage: REYATAZ 150MG TABLETS AT A DOSE OF 300 MG DAILY
     Route: 048
     Dates: start: 20080901
  3. TRUVADA [Suspect]
     Indication: ANTIRETROVIRAL THERAPY
     Dosage: 1 DF = 1 TABS
     Route: 048
     Dates: start: 20080901

REACTIONS (1)
  - THROMBOPHLEBITIS [None]
